FAERS Safety Report 10712450 (Version 3)
Quarter: 2015Q2

REPORT INFORMATION
  Report Type: Report from Study
  Country: TH (occurrence: TH)
  Receive Date: 20150115
  Receipt Date: 20150424
  Transmission Date: 20150821
  Serious: Yes (Life-Threatening)
  Sender: FDA-Public Use
  Company Number: TH-ROCHE-1156478

PATIENT
  Age: 62 Year
  Sex: Female
  Weight: 67.5 kg

DRUGS (19)
  1. DOXORUBICIN [Suspect]
     Active Substance: DOXORUBICIN
     Indication: DIFFUSE LARGE B-CELL LYMPHOMA
     Dosage: MOST RECENT DOSE:12 OCT 2012, 84MG
     Route: 042
     Dates: start: 20120831
  2. PREDNISONE. [Suspect]
     Active Substance: PREDNISONE
     Indication: DIFFUSE LARGE B-CELL LYMPHOMA
     Dosage: LAST DOSE:12 OCT 2012, 100MG
     Route: 042
     Dates: start: 20120831
  3. ATIVAN [Concomitant]
     Active Substance: LORAZEPAM
     Indication: INSOMNIA
     Dosage: PROPHYLAXIS FOR INSOMNIA
     Route: 065
     Dates: start: 20120830, end: 20140205
  4. SENOKOT [Concomitant]
     Active Substance: SENNOSIDES
     Dosage: PROPHYLAXIS FOR CONSTIPATION
     Route: 065
     Dates: start: 20120830, end: 20121025
  5. VITAMIN B COMPLEX [Concomitant]
     Active Substance: CYANOCOBALAMIN\DEXPANTHENOL\NIACINAMIDE\PYRIDOXINE HYDROCHLORIDE\RIBOFLAVIN 5^-PHOSPHATE SODIUM\THIAMINE HYDROCHLORIDE\VITAMIN B COMPLEX
     Indication: HYPOAESTHESIA
     Route: 065
     Dates: start: 20120914, end: 20140205
  6. PARACETAMOL [Concomitant]
     Active Substance: ACETAMINOPHEN
     Indication: MYALGIA
     Dosage: PREMEDICATION FOR OBINUTIZUMAB
     Route: 065
     Dates: start: 20120831, end: 20121012
  7. ATARAX [Concomitant]
     Active Substance: HYDROXYZINE\HYDROXYZINE HYDROCHLORIDE
     Indication: PRURITUS
     Route: 065
     Dates: start: 20120914
  8. SIMETHICONE [Concomitant]
     Active Substance: DIMETHICONE\SILICON DIOXIDE\SIMETHICONE
     Indication: DYSPEPSIA
     Route: 065
     Dates: start: 20121021, end: 20121203
  9. DULCOLAX (BISACODYL) [Concomitant]
     Active Substance: BISACODYL
     Indication: CONSTIPATION
     Dosage: PROPHYLAXIS FOR CONSTIPATIO
     Route: 065
     Dates: start: 20121021, end: 20121203
  10. OBINUTUZUMAB [Suspect]
     Active Substance: OBINUTUZUMAB
     Indication: DIFFUSE LARGE B-CELL LYMPHOMA
     Dosage: MOST RECENT DOSE:12 OCT 2012, VOLUME: 1000ML, CONCENTRATION:4 MG/ML
     Route: 042
     Dates: start: 20120831
  11. MOTILIUM [Concomitant]
     Active Substance: DOMPERIDONE
     Dosage: PROPHYLAXIS FOR NAUSEA AND VOMITING
     Route: 065
     Dates: start: 20120830, end: 20121230
  12. PARACETAMOL [Concomitant]
     Active Substance: ACETAMINOPHEN
     Route: 065
     Dates: start: 20121011, end: 20130822
  13. OMEPRAZOLE. [Concomitant]
     Active Substance: OMEPRAZOLE
     Indication: GASTRIC ULCER
     Dosage: PROPHYLAXIS FOR GASTRIC ULCER
     Route: 065
     Dates: start: 20120830
  14. CYCLOPHOSPHAMIDE. [Suspect]
     Active Substance: CYCLOPHOSPHAMIDE
     Indication: DIFFUSE LARGE B-CELL LYMPHOMA
     Dosage: MOST RECENT DOSE:12 OCT 2012, 1260MG
     Route: 042
     Dates: start: 20120831
  15. VINCRISTINE [Suspect]
     Active Substance: VINCRISTINE
     Indication: DIFFUSE LARGE B-CELL LYMPHOMA
     Dosage: MOST RECENT DOSE:12 OCT 2012, 2MG
     Route: 042
     Dates: start: 20120831
  16. BENADRYL (THAILAND) [Concomitant]
     Route: 065
     Dates: start: 20120831, end: 20121012
  17. DEXAMETHASONE. [Concomitant]
     Active Substance: DEXAMETHASONE
     Route: 065
     Dates: start: 20120831, end: 20121012
  18. ONDANSETRON [Concomitant]
     Active Substance: ONDANSETRON
     Dosage: PREMEDICATION FOR CHOP
     Route: 065
     Dates: start: 20120831, end: 20121012
  19. DIMENHYDRINATE. [Concomitant]
     Active Substance: DIMENHYDRINATE
     Indication: DIZZINESS
     Route: 065
     Dates: start: 20121118, end: 20121127

REACTIONS (1)
  - Myocardial infarction [Not Recovered/Not Resolved]

NARRATIVE: CASE EVENT DATE: 20121021
